FAERS Safety Report 10422868 (Version 1)
Quarter: 2014Q3

REPORT INFORMATION
  Report Type: Spontaneous
  Country: AT (occurrence: AT)
  Receive Date: 20140902
  Receipt Date: 20140902
  Transmission Date: 20150326
  Serious: Yes (Hospitalization, Other)
  Sender: FDA-Public Use
  Company Number: AT-AUROBINDO-AUR-APL-2014-09268

PATIENT
  Age: 45 Year
  Sex: Male

DRUGS (4)
  1. AMOXICILLIN+CLAVULANIC ACID 875/125MG [Suspect]
     Active Substance: AMOXICILLIN\CLAVULANIC ACID
     Indication: PYREXIA
     Dosage: 875/125 MG, TWO TIMES A DAY
     Route: 065
  2. VALACYCLOVIR HCL [Concomitant]
     Active Substance: VALACYCLOVIR HYDROCHLORIDE
     Indication: VIRAL INFECTION
     Dosage: UNK
     Route: 065
  3. AMOXICILLIN+CLAVULANIC ACID 875/125MG [Suspect]
     Active Substance: AMOXICILLIN\CLAVULANIC ACID
     Indication: LYMPHADENOPATHY
  4. AMOXICILLIN+CLAVULANIC ACID 875/125MG [Suspect]
     Active Substance: AMOXICILLIN\CLAVULANIC ACID
     Indication: RASH

REACTIONS (7)
  - Pruritus [None]
  - Cough [None]
  - Toxocariasis [None]
  - Drug reaction with eosinophilia and systemic symptoms [Recovering/Resolving]
  - Ascariasis [None]
  - Myalgia [None]
  - Diarrhoea [None]
